FAERS Safety Report 24594395 (Version 2)
Quarter: 2024Q4

REPORT INFORMATION
  Report Type: Spontaneous
  Country: JP (occurrence: JP)
  Receive Date: 20241108
  Receipt Date: 20241121
  Transmission Date: 20250115
  Serious: Yes (Death, Other)
  Sender: GILEAD
  Company Number: JP-GILEAD-2024-0689718

PATIENT
  Age: 77 Year
  Sex: Male

DRUGS (2)
  1. YESCARTA [Suspect]
     Active Substance: AXICABTAGENE CILOLEUCEL
     Indication: Diffuse large B-cell lymphoma
     Dosage: UNK
     Route: 065
  2. VEKLURY [Suspect]
     Active Substance: REMDESIVIR
     Indication: COVID-19 pneumonia
     Dosage: UNK
     Route: 065
     Dates: start: 20241015

REACTIONS (5)
  - COVID-19 pneumonia [Unknown]
  - Diffuse large B-cell lymphoma [Unknown]
  - Acute respiratory distress syndrome [Fatal]
  - Acute respiratory failure [Fatal]
  - Manufacturing issue [Unknown]

NARRATIVE: CASE EVENT DATE: 20241001
